FAERS Safety Report 9624682 (Version 1)
Quarter: 2013Q4

REPORT INFORMATION
  Report Type: Spontaneous
  Country: SE (occurrence: None)
  Receive Date: 20131010
  Receipt Date: 20131010
  Transmission Date: 20140711
  Serious: Yes (Life-Threatening)
  Sender: FDA-Public Use
  Company Number: 2135225-2013-00099

PATIENT
  Age: 29 Year
  Sex: Male

DRUGS (4)
  1. AETHOXYSKLEROL [Suspect]
     Dates: start: 201210
  2. ONDANSETRON [Concomitant]
  3. FENTANYL [Concomitant]
  4. SEVOFLURANE [Concomitant]

REACTIONS (4)
  - Off label use [None]
  - Cardiac arrest [None]
  - Apparent life threatening event [None]
  - Cardiac arrest [None]
